FAERS Safety Report 15551899 (Version 2)
Quarter: 2018Q4

REPORT INFORMATION
  Report Type: Spontaneous
  Country: CH (occurrence: CH)
  Receive Date: 20181025
  Receipt Date: 20181101
  Transmission Date: 20190205
  Serious: Yes (Hospitalization)
  Sender: FDA-Public Use
  Company Number: CH-MYLANLABS-2018M1079980

PATIENT
  Age: 56 Year
  Sex: Male

DRUGS (4)
  1. BRUFEN [Suspect]
     Active Substance: IBUPROFEN
     Indication: POSTOPERATIVE ANALGESIA
     Dosage: 400 MG, Q8H
     Route: 048
     Dates: start: 20181004, end: 20181007
  2. FRAGMIN [Concomitant]
     Active Substance: DALTEPARIN SODIUM
     Indication: THROMBOSIS PROPHYLAXIS
     Dosage: 5000 IU, QD
     Route: 058
     Dates: start: 20181004
  3. ROPIVACAINE. [Concomitant]
     Active Substance: ROPIVACAINE HYDROCHLORIDE
     Indication: PERIOPERATIVE ANALGESIA
     Dosage: UNK
     Dates: start: 20181004, end: 20181007
  4. NOVALGIN (METAMIZOLE SODIUM) [Suspect]
     Active Substance: METAMIZOLE SODIUM
     Indication: POSTOPERATIVE ANALGESIA
     Dosage: 1000 MG, Q6H
     Route: 048
     Dates: start: 20181004, end: 20181007

REACTIONS (3)
  - Agranulocytosis [Recovered/Resolved]
  - Thrombocytopenia [Recovered/Resolved]
  - Sepsis [Recovered/Resolved]

NARRATIVE: CASE EVENT DATE: 20181007
